FAERS Safety Report 5838336-X (Version None)
Quarter: 2008Q3

REPORT INFORMATION
  Report Type: 
  Country: None (occurrence: None)
  Receive Date: 20080808
  Receipt Date: 20080728
  Transmission Date: 20090109
  Serious: Yes (Hospitalization)
  Sender: FDA-Public Use
  Company Number: CH-ROCHE-578440

PATIENT
  Age: 75 Year
  Sex: Female
  Weight: 46 kg

DRUGS (4)
  1. BONIVA [Suspect]
     Indication: OSTEOPOROSIS
     Dosage: DOSAGE REGIMEN: 11 MONTHS
     Route: 048
     Dates: start: 20051201, end: 20080101
  2. SIMVASTATIN [Concomitant]
     Dosage: DRUG NAME: SIMVASIN, DOSAGE REGIMEN: 1 DAY
     Route: 048
     Dates: start: 20050101
  3. OPRAZOL [Concomitant]
     Route: 048
     Dates: start: 20070101
  4. DAFALGAN [Concomitant]
     Dosage: DOSAGE REGIMEN: AS NECESSARY.
     Route: 048
     Dates: start: 20050101

REACTIONS (1)
  - OSTEITIS [None]
